FAERS Safety Report 17534917 (Version 2)
Quarter: 2020Q2

REPORT INFORMATION
  Report Type: Spontaneous
  Country: US (occurrence: US)
  Receive Date: 20200312
  Receipt Date: 20200417
  Transmission Date: 20200713
  Serious: Yes (Hospitalization)
  Sender: FDA-Public Use
  Company Number: US-TEVA-2020-US-1196922

PATIENT
  Age: 77 Year
  Sex: Female

DRUGS (1)
  1. OMEPRAZOLE. [Suspect]
     Active Substance: OMEPRAZOLE
     Indication: GASTROOESOPHAGEAL REFLUX DISEASE
     Dosage: 20 MILLIGRAM DAILY;
     Route: 065

REACTIONS (5)
  - Chronic gastrointestinal bleeding [Recovering/Resolving]
  - Gastric polyps [Recovering/Resolving]
  - Hypergastrinaemia [Recovering/Resolving]
  - Iron deficiency anaemia [Recovering/Resolving]
  - Diverticulum intestinal [Recovering/Resolving]
